FAERS Safety Report 25941615 (Version 1)
Quarter: 2025Q4

REPORT INFORMATION
  Report Type: Spontaneous
  Country: US (occurrence: US)
  Receive Date: 20251020
  Receipt Date: 20251020
  Transmission Date: 20260118
  Serious: Yes (Other)
  Sender: BLISTEX INC.
  Company Number: US-Blistex Inc.-2186924

PATIENT
  Age: 52 Year
  Sex: Male

DRUGS (3)
  1. KANK-A MOUTH PAIN [Suspect]
     Active Substance: BENZOCAINE
     Dates: start: 20250511
  2. NAPROXEN [Interacting]
     Active Substance: NAPROXEN
  3. METHOCARBAMOL [Interacting]
     Active Substance: METHOCARBAMOL

REACTIONS (1)
  - Gingivitis [Not Recovered/Not Resolved]

NARRATIVE: CASE EVENT DATE: 20250514
